FAERS Safety Report 14603757 (Version 1)
Quarter: 2018Q1

REPORT INFORMATION
  Report Type: Spontaneous
  Country: FR (occurrence: FR)
  Receive Date: 20180306
  Receipt Date: 20180306
  Transmission Date: 20180509
  Serious: Yes (Hospitalization)
  Sender: FDA-Public Use
  Company Number: FR-PFIZER INC-2018091588

PATIENT
  Age: 84 Year
  Sex: Male

DRUGS (9)
  1. CLASTOBAN [Interacting]
     Active Substance: CLODRONIC ACID
     Indication: METASTASES TO BONE
     Dosage: 1600 MG, DAILY
     Route: 048
     Dates: end: 20180116
  2. COLCHIMAX [Interacting]
     Active Substance: COLCHICINE\DICYCLOMINE HYDROCHLORIDE
     Indication: GOUT
     Dosage: UNK
     Route: 048
     Dates: start: 20180104, end: 20180116
  3. RAMIPRIL. [Suspect]
     Active Substance: RAMIPRIL
     Indication: HYPERTENSION
     Dosage: 5 MG, DAILY
     Route: 048
     Dates: end: 20180116
  4. DONORMYL (DOXYLAMINE\SODIUM BROMIDE\SODIUM PHOSPHATE, DIBASIC, ANHYDROUS\SODIUM SULFATE) [Interacting]
     Active Substance: DOXYLAMINE\SODIUM BROMIDE\SODIUM PHOSPHATE, DIBASIC, ANHYDROUS\SODIUM SULFATE
     Indication: INSOMNIA
     Dosage: 15 MG, DAILY
     Route: 048
     Dates: start: 20171211, end: 20180116
  5. BEFIZAL [Interacting]
     Active Substance: BEZAFIBRATE
     Indication: HYPERLIPIDAEMIA
     Dosage: 400 MG, DAILY
     Route: 048
     Dates: end: 20180116
  6. IDEOS [Interacting]
     Active Substance: CALCIUM CARBONATE\CHOLECALCIFEROL
     Indication: OSTEOPOROSIS
     Dosage: UNK
     Route: 048
     Dates: end: 20180116
  7. ACECLOFENAC [Interacting]
     Active Substance: ACECLOFENAC
     Indication: ARTHRALGIA
     Dosage: 200 MG, DAILY
     Route: 048
     Dates: start: 20180104, end: 20180111
  8. LASILIX [Interacting]
     Active Substance: FUROSEMIDE
     Dosage: 120 MG, DAILY
     Route: 048
     Dates: start: 20171211, end: 20180116
  9. ADENURIC [Interacting]
     Active Substance: FEBUXOSTAT
     Indication: GOUT
     Dosage: 120 MG, DAILY
     Route: 048
     Dates: start: 20180104, end: 20180116

REACTIONS (2)
  - Drug interaction [Unknown]
  - Acute kidney injury [Recovered/Resolved]

NARRATIVE: CASE EVENT DATE: 20180116
